FAERS Safety Report 15515527 (Version 2)
Quarter: 2018Q4

REPORT INFORMATION
  Report Type: Spontaneous
  Country: US (occurrence: US)
  Receive Date: 20181017
  Receipt Date: 20181206
  Transmission Date: 20190205
  Serious: No
  Sender: FDA-Public Use
  Company Number: US-ASTRAZENECA-2018SF20255

PATIENT
  Sex: Female
  Weight: 49.9 kg

DRUGS (3)
  1. PROAIR INHALER [Concomitant]
     Active Substance: ALBUTEROL SULFATE
     Indication: ASTHMA
     Dosage: 1 OR 2 PUFFS TO 8 PUFFS
     Route: 055
  2. SYMBICORT [Suspect]
     Active Substance: BUDESONIDE\FORMOTEROL FUMARATE DIHYDRATE
     Indication: ASTHMA
     Dosage: 160/4.5, 2 PUFFS TWICE A DAY
     Route: 055
     Dates: start: 2017
  3. PREDNISONE. [Concomitant]
     Active Substance: PREDNISONE
     Dates: start: 20180907, end: 20180917

REACTIONS (6)
  - Intentional product misuse [Unknown]
  - Cerebral disorder [Unknown]
  - Asthma [Unknown]
  - Device malfunction [Unknown]
  - Pulmonary congestion [Unknown]
  - Product dose omission [Not Recovered/Not Resolved]
